FAERS Safety Report 21828416 (Version 4)
Quarter: 2023Q1

REPORT INFORMATION
  Report Type: Report from Study
  Country: US (occurrence: US)
  Receive Date: 20230106
  Receipt Date: 20230320
  Transmission Date: 20230417
  Serious: No
  Sender: FDA-Public Use
  Company Number: US-002147023-NVSC2023US002299

PATIENT
  Sex: Male

DRUGS (1)
  1. COSENTYX [Suspect]
     Active Substance: SECUKINUMAB
     Indication: Psoriasis
     Dosage: 300 MG, QMO (2 PENS OF 150 MG/ML)
     Route: 058

REACTIONS (3)
  - Psoriasis [Recovering/Resolving]
  - Skin fissures [Recovering/Resolving]
  - Skin plaque [Recovering/Resolving]
